FAERS Safety Report 9206221 (Version 8)
Quarter: 2015Q1

REPORT INFORMATION
  Report Type: Spontaneous
  Country: US (occurrence: US)
  Receive Date: 20130403
  Receipt Date: 20150114
  Transmission Date: 20150721
  Serious: Yes (Death, Hospitalization, Other)
  Sender: FDA-Public Use
  Company Number: US-PFIZER INC-2013104068

PATIENT
  Age: 79 Year
  Sex: Female
  Weight: 61 kg

DRUGS (19)
  1. ASPIRIN. [Concomitant]
     Active Substance: ASPIRIN
     Dosage: UNK
  2. LISINOPRIL. [Concomitant]
     Active Substance: LISINOPRIL
     Dosage: UNK
  3. VITAMIN E [Concomitant]
     Active Substance: .ALPHA.-TOCOPHEROL
     Dosage: UNK
  4. CALTRATE 600+D [Concomitant]
     Dosage: UNK
  5. VITAMIN D3 [Concomitant]
     Active Substance: CHOLECALCIFEROL
     Dosage: UNK
  6. VITAMIN B12 [Concomitant]
     Active Substance: CYANOCOBALAMIN
     Dosage: UNK
  7. SYNTHROID [Concomitant]
     Active Substance: LEVOTHYROXINE SODIUM
     Dosage: UNK
  8. SUTENT [Suspect]
     Active Substance: SUNITINIB MALATE
     Dosage: 50 MG, DAILY
  9. PROMETHAZINE HYDROCHLORIDE. [Concomitant]
     Active Substance: PROMETHAZINE HYDROCHLORIDE
     Dosage: UNK
  10. SUTENT [Suspect]
     Active Substance: SUNITINIB MALATE
     Dosage: 12.5 MG, UNK
     Dates: start: 20130312
  11. SUTENT [Suspect]
     Active Substance: SUNITINIB MALATE
     Dosage: 25 MG, 1X/DAY
     Dates: start: 20130115
  12. LEVOXYL [Concomitant]
     Active Substance: LEVOTHYROXINE SODIUM
     Dosage: UNK
  13. CENTRUM SILVER [Concomitant]
     Active Substance: VITAMINS
     Dosage: UNK
  14. FISH OIL BURP-LESS [Concomitant]
     Dosage: UNK
  15. SUTENT [Suspect]
     Active Substance: SUNITINIB MALATE
     Indication: METASTATIC RENAL CELL CARCINOMA
     Dosage: 25 MG, DAILY
     Dates: start: 20120101
  16. METOPROLOL SUCCINATE ER [Concomitant]
     Active Substance: METOPROLOL SUCCINATE
     Dosage: UNK
  17. NIFEDIPINE ER [Concomitant]
     Active Substance: NIFEDIPINE
     Dosage: UNK
  18. METFORMIN HYDROCHLORIDE. [Concomitant]
     Active Substance: METFORMIN HYDROCHLORIDE
     Dosage: UNK
  19. PRAVASTATIN SODIUM. [Concomitant]
     Active Substance: PRAVASTATIN SODIUM
     Dosage: UNK

REACTIONS (19)
  - Cardio-respiratory arrest [Fatal]
  - Cardiopulmonary failure [Fatal]
  - Disease progression [Fatal]
  - Metastatic renal cell carcinoma [Fatal]
  - Epistaxis [Unknown]
  - Diarrhoea [Unknown]
  - Sinus disorder [Unknown]
  - Nausea [Unknown]
  - Hypertensive heart disease [Fatal]
  - Joint swelling [Unknown]
  - Stomatitis [Unknown]
  - Gingival pain [Unknown]
  - Hip fracture [Unknown]
  - Dyspnoea [Unknown]
  - Cough [Unknown]
  - Skin disorder [Unknown]
  - Dysgeusia [Not Recovered/Not Resolved]
  - Peripheral swelling [Unknown]
  - Blood pressure increased [Unknown]

NARRATIVE: CASE EVENT DATE: 2013
